FAERS Safety Report 13864406 (Version 1)
Quarter: 2017Q3

REPORT INFORMATION
  Report Type: Spontaneous
  Country: US (occurrence: US)
  Receive Date: 20170812
  Receipt Date: 20170812
  Transmission Date: 20171127
  Serious: No
  Sender: FDA-Public Use
  Company Number: None

PATIENT
  Age: 43 Year
  Sex: Female
  Weight: 85.5 kg

DRUGS (1)
  1. SMZ/TMP DS 800-160 TAB AMN GENERIC FOR BACTRIM DS 800-160 [Suspect]
     Active Substance: SULFAMETHOXAZOLE\TRIMETHOPRIM
     Indication: CYSTITIS
     Dosage: ?          OTHER STRENGTH:DOES NOT STATE;QUANTITY:1 TABLET(S);?
     Route: 048
     Dates: start: 20170809, end: 20170811

REACTIONS (3)
  - Muscle twitching [None]
  - Muscle spasms [None]
  - Gait disturbance [None]

NARRATIVE: CASE EVENT DATE: 20170811
